FAERS Safety Report 24202007 (Version 1)
Quarter: 2024Q3

REPORT INFORMATION
  Report Type: Report from Study
  Country: CA (occurrence: CA)
  Receive Date: 20240812
  Receipt Date: 20240812
  Transmission Date: 20241016
  Serious: Yes (Hospitalization, Other)
  Sender: HLS THERAPEUTICS
  Company Number: CA-HLS-202401931

PATIENT
  Sex: Male

DRUGS (6)
  1. CLOZARIL [Suspect]
     Active Substance: CLOZAPINE
     Indication: Product used for unknown indication
     Dosage: 150MG
     Route: 048
     Dates: start: 20240724, end: 20240728
  2. CLOZARIL [Suspect]
     Active Substance: CLOZAPINE
     Indication: Product used for unknown indication
     Dosage: 225MG
     Route: 048
     Dates: start: 20240728
  3. CLOZARIL [Suspect]
     Active Substance: CLOZAPINE
     Indication: Product used for unknown indication
     Dosage: 475 MG
     Route: 048
     Dates: start: 20210402, end: 20240716
  4. CLOZARIL [Suspect]
     Active Substance: CLOZAPINE
     Indication: Product used for unknown indication
     Dosage: 475MG
     Route: 048
     Dates: start: 20240618, end: 20240724
  5. MIRTAZAPINE [Concomitant]
     Active Substance: MIRTAZAPINE
     Indication: Product used for unknown indication
     Dosage: 15MG
     Route: 065
     Dates: start: 20240718
  6. OLANZAPINE [Concomitant]
     Active Substance: OLANZAPINE
     Indication: Product used for unknown indication
     Dosage: 20MG
     Route: 065
     Dates: start: 20240718

REACTIONS (3)
  - Orthostatic hypotension [Unknown]
  - Tachycardia [Unknown]
  - Troponin increased [Unknown]
